FAERS Safety Report 11864620 (Version 5)
Quarter: 2016Q2

REPORT INFORMATION
  Report Type: Spontaneous
  Country: US (occurrence: US)
  Receive Date: 20151223
  Receipt Date: 20160411
  Transmission Date: 20160815
  Serious: Yes (Hospitalization)
  Sender: FDA-Public Use
  Company Number: US-VERTEX PHARMACEUTICALS-2015-005931

PATIENT
  Sex: Female

DRUGS (4)
  1. KALYDECO [Suspect]
     Active Substance: IVACAFTOR
     Indication: CYSTIC FIBROSIS
     Dosage: 150 MG, BID
     Route: 048
     Dates: start: 201508
  2. PANCREATIC ENZYMES [Concomitant]
     Active Substance: UNSPECIFIED INGREDIENT
  3. PULMOZYME [Concomitant]
     Active Substance: DORNASE ALFA
  4. HYPERTONIC SALINE SOLUTION [Concomitant]
     Active Substance: SODIUM CHLORIDE

REACTIONS (2)
  - Pneumonia [Unknown]
  - Cystic fibrosis lung [Not Recovered/Not Resolved]

NARRATIVE: CASE EVENT DATE: 2015
